FAERS Safety Report 15233729 (Version 2)
Quarter: 2019Q2

REPORT INFORMATION
  Report Type: Spontaneous
  Country: US (occurrence: US)
  Receive Date: 20180802
  Receipt Date: 20190521
  Transmission Date: 20190711
  Serious: Yes (Hospitalization)
  Sender: FDA-Public Use
  Company Number: US-ACTELION-A-NJ2018-170881

PATIENT
  Age: 69 Year
  Sex: Female

DRUGS (1)
  1. OPSUMIT [Suspect]
     Active Substance: MACITENTAN
     Indication: PULMONARY ARTERIAL HYPERTENSION
     Dosage: 10 MG, QD
     Route: 048
     Dates: start: 20180129

REACTIONS (5)
  - Palpitations [Unknown]
  - Headache [Not Recovered/Not Resolved]
  - Hypotension [Unknown]
  - Lipids [Unknown]
  - Tooth disorder [Recovered/Resolved]

NARRATIVE: CASE EVENT DATE: 201804
